FAERS Safety Report 12419934 (Version 1)
Quarter: 2016Q2

REPORT INFORMATION
  Report Type: Report from Study
  Country: US (occurrence: US)
  Receive Date: 20160531
  Receipt Date: 20160531
  Transmission Date: 20160815
  Serious: No
  Sender: FDA-Public Use
  Company Number: US-009507513-1605USA007749

PATIENT

DRUGS (1)
  1. EMEND [Suspect]
     Active Substance: APREPITANT
     Dosage: 150 MG, ONCE
     Route: 042

REACTIONS (2)
  - Inappropriate schedule of drug administration [Unknown]
  - No adverse event [Not Recovered/Not Resolved]
